FAERS Safety Report 18256317 (Version 1)
Quarter: 2020Q3

REPORT INFORMATION
  Report Type: Spontaneous
  Country: US (occurrence: US)
  Receive Date: 20200910
  Receipt Date: 20200910
  Transmission Date: 20201103
  Serious: No
  Sender: FDA-Public Use
  Company Number: None

PATIENT
  Age: 70 Year
  Sex: Female
  Weight: 60.33 kg

DRUGS (1)
  1. KETOCONAZOLE 2% CREAM [Suspect]
     Active Substance: KETOCONAZOLE
     Indication: RASH
     Dosage: ?          QUANTITY:APPLY TO AFFECTED ;OTHER ROUTE:ON THE SKIN?
     Dates: start: 20200722, end: 20200808

REACTIONS (3)
  - Condition aggravated [None]
  - Rash erythematous [None]
  - Pain [None]

NARRATIVE: CASE EVENT DATE: 20200802
